FAERS Safety Report 13536041 (Version 2)
Quarter: 2017Q3

REPORT INFORMATION
  Report Type: Spontaneous
  Country: US (occurrence: US)
  Receive Date: 20170511
  Receipt Date: 20170724
  Transmission Date: 20171127
  Serious: Yes (Life-Threatening, Hospitalization, Other)
  Sender: FDA-Public Use
  Company Number: PHHY2017US064163

PATIENT
  Age: 45 Year
  Sex: Female

DRUGS (1)
  1. METFORMIN [Suspect]
     Active Substance: METFORMIN HYDROCHLORIDE
     Indication: TYPE 2 DIABETES MELLITUS
     Dosage: UNK
     Route: 065

REACTIONS (9)
  - Night sweats [Unknown]
  - Pancytopenia [Recovering/Resolving]
  - Conjunctival pallor [Unknown]
  - Dizziness [Unknown]
  - Presyncope [Unknown]
  - Vitamin B12 deficiency [Recovering/Resolving]
  - Paraesthesia [Unknown]
  - Atrophic glossitis [Unknown]
  - Autoimmune haemolytic anaemia [Recovering/Resolving]
